FAERS Safety Report 5358387-1 (Version None)
Quarter: 2007Q2

REPORT INFORMATION
  Report Type: 
  Country: None (occurrence: None)
  Receive Date: 20070615
  Receipt Date: 20070607
  Transmission Date: 20071010
  Serious: Yes (Other)
  Sender: FDA-Public Use
  Company Number: PHEH2007US04479

PATIENT
  Sex: Female

DRUGS (4)
  1. ZOMETA [Suspect]
     Indication: METASTASES TO BONE
     Dosage: 4 MG EVERY 3 TO 4 WEEKS
     Route: 042
     Dates: start: 20020801, end: 20061201
  2. AROMASIN [Concomitant]
  3. HERCEPTIN [Concomitant]
  4. MEGACE [Concomitant]

REACTIONS (6)
  - BONE DISORDER [None]
  - ERYTHEMA [None]
  - JAW FRACTURE [None]
  - OSTEONECROSIS [None]
  - PAIN IN JAW [None]
  - SWELLING [None]
